FAERS Safety Report 14250662 (Version 1)
Quarter: 2017Q4

REPORT INFORMATION
  Report Type: Spontaneous
  Country: US (occurrence: US)
  Receive Date: 20171205
  Receipt Date: 20171205
  Transmission Date: 20180321
  Serious: No
  Sender: FDA-Public Use
  Company Number: US-ENDO PHARMACEUTICALS INC-2017-004777

PATIENT
  Age: 62 Year
  Sex: Female

DRUGS (1)
  1. ALPRAZOLAM TABLETS 1 MG [Suspect]
     Active Substance: ALPRAZOLAM
     Indication: POST-TRAUMATIC STRESS DISORDER
     Dosage: 5 DF, DAILY
     Route: 065
     Dates: start: 20170402, end: 20170831

REACTIONS (4)
  - Panic attack [Not Recovered/Not Resolved]
  - Drug ineffective [Unknown]
  - Ocular discomfort [Not Recovered/Not Resolved]
  - Visual impairment [Not Recovered/Not Resolved]

NARRATIVE: CASE EVENT DATE: 201706
